FAERS Safety Report 7464356-8 (Version None)
Quarter: 2011Q2

REPORT INFORMATION
  Report Type: 
  Country: None (occurrence: None)
  Receive Date: 20110509
  Receipt Date: 20110502
  Transmission Date: 20111010
  Serious: Yes (Hospitalization, Other)
  Sender: FDA-Public Use
  Company Number: US-TEVA-275569USA

PATIENT
  Age: 55 Year
  Sex: Male

DRUGS (2)
  1. NORTRIPTYLINE HYDROCHLORIDE [Suspect]
     Dates: start: 20050118
  2. METHADONE HCL [Interacting]
     Indication: PAIN
     Dosage: 15 MG/DAY
     Dates: start: 20040322

REACTIONS (2)
  - ELECTROCARDIOGRAM QT PROLONGED [None]
  - DRUG INTERACTION [None]
